FAERS Safety Report 20680414 (Version 2)
Quarter: 2023Q4

REPORT INFORMATION
  Report Type: Report from Study
  Country: BR (occurrence: BR)
  Receive Date: 20220406
  Receipt Date: 20231101
  Transmission Date: 20240109
  Serious: Yes (Other)
  Sender: FDA-Public Use
  Company Number: BR-TAKEDA-2022TUS021840

PATIENT
  Age: 8 Year
  Sex: Male
  Weight: 25.002 kg

DRUGS (7)
  1. ANTI-INHIBITOR COAGULANT COMPLEX [Suspect]
     Active Substance: ANTI-INHIBITOR COAGULANT COMPLEX
     Indication: Factor VIII deficiency
     Dosage: 3000 INTERNATIONAL UNIT, 3/WEEK
     Route: 042
     Dates: start: 20150101
  2. ANTI-INHIBITOR COAGULANT COMPLEX [Suspect]
     Active Substance: ANTI-INHIBITOR COAGULANT COMPLEX
     Dosage: 2500 INTERNATIONAL UNIT, 3/WEEK
     Route: 042
     Dates: start: 2015
  3. ANTI-INHIBITOR COAGULANT COMPLEX [Suspect]
     Active Substance: ANTI-INHIBITOR COAGULANT COMPLEX
     Dosage: 2500 INTERNATIONAL UNIT, 3/WEEK
     Route: 042
     Dates: start: 2015
  4. ANTI-INHIBITOR COAGULANT COMPLEX [Suspect]
     Active Substance: ANTI-INHIBITOR COAGULANT COMPLEX
     Dosage: 3000 INTERNATIONAL UNIT, 3/WEEK
     Route: 042
     Dates: start: 20181122
  5. ANTI-INHIBITOR COAGULANT COMPLEX [Suspect]
     Active Substance: ANTI-INHIBITOR COAGULANT COMPLEX
     Dosage: 2500 INTERNATIONAL UNIT, 3/WEEK
     Route: 042
     Dates: start: 2020
  6. EMICIZUMAB [Suspect]
     Active Substance: EMICIZUMAB
     Indication: Product used for unknown indication
     Dosage: UNK UNK, 2/MONTH
     Route: 058
  7. ALLEGRA [Concomitant]
     Active Substance: FEXOFENADINE HYDROCHLORIDE
     Indication: Asthma
     Dosage: UNK, PRN
     Route: 065

REACTIONS (7)
  - Haemorrhage [Unknown]
  - Joint injury [Unknown]
  - Wound [Not Recovered/Not Resolved]
  - Anti factor VIII antibody increased [Unknown]
  - Drug ineffective [Unknown]
  - Arthralgia [Recovered/Resolved]
  - Weight increased [Not Recovered/Not Resolved]

NARRATIVE: CASE EVENT DATE: 20200801
